FAERS Safety Report 23658604 (Version 5)
Quarter: 2024Q4

REPORT INFORMATION
  Report Type: Spontaneous
  Country: US (occurrence: US)
  Receive Date: 20240321
  Receipt Date: 20241128
  Transmission Date: 20250114
  Serious: Yes (Life-Threatening, Other)
  Sender: UCB
  Company Number: US-UCBSA-2024013903

PATIENT
  Sex: Female
  Weight: 90.7 kg

DRUGS (4)
  1. RYSTIGGO [Suspect]
     Active Substance: ROZANOLIXIZUMAB-NOLI
     Indication: Myasthenia gravis
     Dosage: 140 MILLIGRAM PER MILLILITRE, ONCE A WEEK
     Dates: start: 20231027
  2. RYSTIGGO [Suspect]
     Active Substance: ROZANOLIXIZUMAB-NOLI
     Dosage: 140 MILLIGRAM PER MILLILITRE, ONCE A WEEK
     Dates: start: 20231230
  3. RYSTIGGO [Suspect]
     Active Substance: ROZANOLIXIZUMAB-NOLI
     Dosage: 140 MILLIGRAM PER MILLILITRE, ONCE A WEEK
     Dates: start: 20240203, end: 20240224
  4. PREDNISONE [Concomitant]
     Active Substance: PREDNISONE
     Indication: Product used for unknown indication
     Dosage: 4 MILLIGRAM

REACTIONS (10)
  - Dyspnoea [Recovered/Resolved]
  - Dysphagia [Recovered/Resolved]
  - Myasthenia gravis [Recovered/Resolved]
  - Paralysis [Recovering/Resolving]
  - Immune system disorder [Recovered/Resolved]
  - Bulbar palsy [Recovered/Resolved]
  - Speech disorder [Recovered/Resolved]
  - Illness [Unknown]
  - Feeling abnormal [Unknown]
  - Therapy interrupted [Unknown]

NARRATIVE: CASE EVENT DATE: 20230101
